FAERS Safety Report 5512430-5 (Version None)
Quarter: 2007Q4

REPORT INFORMATION
  Report Type: 
  Country: None (occurrence: None)
  Receive Date: 20071112
  Receipt Date: 20061106
  Transmission Date: 20080405
  Serious: No
  Sender: FDA-Public Use
  Company Number: A0626331A

PATIENT
  Age: 54 Year
  Sex: Female

DRUGS (6)
  1. AVANDAMET [Suspect]
     Indication: DRUG USE FOR UNKNOWN INDICATION
     Dosage: 4MG TWICE PER DAY
     Route: 048
     Dates: start: 20060803, end: 20061103
  2. MONOPRIL [Concomitant]
  3. GLUCOPHAGE [Concomitant]
  4. IMDUR [Concomitant]
  5. CRESTOR [Concomitant]
  6. GLYNASE [Concomitant]

REACTIONS (1)
  - HYPERSENSITIVITY [None]
